FAERS Safety Report 7041234-X (Version None)
Quarter: 2010Q3

REPORT INFORMATION
  Report Type: 
  Country: None (occurrence: None)
  Receive Date: 20100929
  Receipt Date: 20100823
  Transmission Date: 20110219
  Serious: No
  Sender: FDA-Public Use
  Company Number: US-WYE-H17163410

PATIENT
  Age: 55 Year
  Sex: Female
  Weight: 68.1 kg

DRUGS (5)
  1. PRISTIQ [Suspect]
     Indication: ANXIETY
     Dosage: 50 MG 1X PER 1 DAY, ORAL
     Route: 048
     Dates: start: 20070101
  2. PRISTIQ [Suspect]
     Indication: DEPRESSION
     Dosage: 50 MG 1X PER 1 DAY, ORAL
     Route: 048
     Dates: start: 20070101
  3. XANAX [Concomitant]
  4. FLEXERIL [Concomitant]
  5. DARVON [Concomitant]

REACTIONS (4)
  - DRUG EFFECT DECREASED [None]
  - HIGH DENSITY LIPOPROTEIN DECREASED [None]
  - PRODUCT SIZE ISSUE [None]
  - WRONG TECHNIQUE IN DRUG USAGE PROCESS [None]
